FAERS Safety Report 15835918 (Version 1)
Quarter: 2019Q1

REPORT INFORMATION
  Report Type: Spontaneous
  Country: IT (occurrence: IT)
  Receive Date: 20190117
  Receipt Date: 20190117
  Transmission Date: 20190417
  Serious: Yes (Other)
  Sender: FDA-Public Use
  Company Number: IT-CELLTRION INC.-2019IT017820

PATIENT

DRUGS (3)
  1. RITUXIMAB (UNKNOWN) [Suspect]
     Active Substance: RITUXIMAB
     Indication: NEUROMYELITIS OPTICA SPECTRUM DISORDER
     Dosage: 1 G, UNK (2 INFUSIONS) EVERY 15 DAYS
     Route: 042
  2. TOCILIZUMAB. [Concomitant]
     Active Substance: TOCILIZUMAB
     Indication: NEUROMYELITIS OPTICA SPECTRUM DISORDER
     Dosage: 8 MG/KG, EVERY 4 WEEKS
     Route: 042
     Dates: start: 201609
  3. METHYLPREDNISOLONE SODIUM SUCCINATE. [Suspect]
     Active Substance: METHYLPREDNISOLONE SODIUM SUCCINATE
     Indication: PRODUCT USED FOR UNKNOWN INDICATION
     Dosage: 1 G, UNK
     Route: 042
     Dates: start: 201510

REACTIONS (2)
  - Myelitis [Unknown]
  - Product use in unapproved indication [Unknown]
